FAERS Safety Report 19447671 (Version 2)
Quarter: 2022Q3

REPORT INFORMATION
  Report Type: Spontaneous
  Country: US (occurrence: US)
  Receive Date: 20210622
  Receipt Date: 20220701
  Transmission Date: 20221027
  Serious: No
  Sender: FDA-Public Use
  Company Number: US-THERAPEUTICSMD-2021TMD01603

PATIENT
  Age: 56 Year
  Sex: Female
  Weight: 64.399 kg

DRUGS (26)
  1. IMVEXXY [Suspect]
     Active Substance: ESTRADIOL
     Indication: Vulvovaginal dryness
     Dosage: 4 ?G, 2X/WEEK
     Route: 067
  2. IMVEXXY [Suspect]
     Active Substance: ESTRADIOL
     Indication: Sexual dysfunction
     Dosage: 4 ?G, 1X/WEEK
     Route: 067
     Dates: end: 202104
  3. IMVEXXY [Suspect]
     Active Substance: ESTRADIOL
     Dosage: 4 ?G, 2X/WEEK
     Route: 067
     Dates: start: 2021, end: 2021
  4. REPLENS [Suspect]
     Active Substance: CARBOMER 934\GLYCERIN\METHYLPARABEN\PROPYLPARABEN\SODIUM HYDROXIDE
     Dosage: UNK
     Dates: start: 202011
  5. ESTRIOL [Suspect]
     Active Substance: ESTRIOL
  6. VIELLE DOT [Concomitant]
  7. PROGESTERONE [Concomitant]
     Active Substance: PROGESTERONE
  8. MELOXICAM [Concomitant]
     Active Substance: MELOXICAM
  9. ZYRTEC [Concomitant]
     Active Substance: CETIRIZINE HYDROCHLORIDE
  10. VALTREX [Concomitant]
     Active Substance: VALACYCLOVIR HYDROCHLORIDE
  11. VITAMINS [Concomitant]
     Active Substance: VITAMINS
  12. FISH OIL [Concomitant]
     Active Substance: FISH OIL
  13. CALCIUM AND D3 [Concomitant]
  14. PROBIOTICS NOS [Concomitant]
     Active Substance: PROBIOTICS NOS
  15. LYSINE [Concomitant]
     Active Substance: LYSINE
  16. CLEAR MOOD [Concomitant]
  17. FORMULA W [Concomitant]
  18. ALFA HYDROXY [Concomitant]
  19. UNSPECIFIED INGREDIENT [Concomitant]
     Active Substance: UNSPECIFIED INGREDIENT
  20. COLLAGEN [Concomitant]
     Active Substance: COLLAGEN
  21. SPARK SUPPLEMENT [Concomitant]
  22. BCAA [Concomitant]
  23. GINKGO [Concomitant]
     Active Substance: GINKGO
  24. HTP5 SUPPLEMENT [Concomitant]
  25. AMINO ACIDS, SOURCE UNSPECIFIED [Concomitant]
     Active Substance: AMINO ACIDS, SOURCE UNSPECIFIED
  26. UNSPECIFIED INGREDIENT [Concomitant]
     Active Substance: UNSPECIFIED INGREDIENT

REACTIONS (6)
  - Uterine leiomyoma [Not Recovered/Not Resolved]
  - Discomfort [Recovered/Resolved]
  - Malabsorption from administration site [Recovered/Resolved]
  - Off label use [Recovered/Resolved]
  - Vaginal discharge [Not Recovered/Not Resolved]
  - Breast tenderness [Recovered/Resolved]

NARRATIVE: CASE EVENT DATE: 20200901
